FAERS Safety Report 23714669 (Version 1)
Quarter: 2024Q2

REPORT INFORMATION
  Report Type: Report from Study
  Country: EG (occurrence: EG)
  Receive Date: 20240406
  Receipt Date: 20240406
  Transmission Date: 20240716
  Serious: Yes (Life-Threatening, Other)
  Sender: FDA-Public Use
  Company Number: EG-002147023-NVSC2024EG067035

PATIENT
  Sex: Female

DRUGS (3)
  1. COSENTYX [Suspect]
     Active Substance: SECUKINUMAB
     Indication: Psoriatic arthropathy
     Dosage: 150 MG, (2 PREFILLED SUBCUTANEOUS PEN OF COSENTYX 150MG EVERY WEEK FOR ONE MONTH AS LOADING DOSE THE
     Route: 058
     Dates: start: 2020, end: 2021
  2. COSENTYX [Suspect]
     Active Substance: SECUKINUMAB
     Dosage: 150 MG, (2 PREFILLED SUBCUTANEOUS PEN OF COSENTYX 150MG EVERY WEEK FOR ONE MONTH AS LOADING DOSE THE
     Route: 058
     Dates: start: 20230815, end: 20240315
  3. COSENTYX [Suspect]
     Active Substance: SECUKINUMAB
     Dosage: 150 MG, 2 PREFILLED SUBCUTANEOUS PEN OF COSENTYX 150MG EVERY WEEK FOR ONE MONTH AS LOADING DOSE THEN
     Route: 058
     Dates: start: 20240328

REACTIONS (10)
  - Tuberculosis [Unknown]
  - Psoriatic arthropathy [Not Recovered/Not Resolved]
  - Dermatitis allergic [Not Recovered/Not Resolved]
  - Sensitive skin [Not Recovered/Not Resolved]
  - Dandruff [Recovering/Resolving]
  - Pruritus [Recovering/Resolving]
  - Alopecia [Recovering/Resolving]
  - Hair disorder [Not Recovered/Not Resolved]
  - Concomitant disease aggravated [Unknown]
  - Off label use [Unknown]

NARRATIVE: CASE EVENT DATE: 20200101
